FAERS Safety Report 21243883 (Version 1)
Quarter: 2022Q3

REPORT INFORMATION
  Report Type: Spontaneous
  Country: US (occurrence: US)
  Receive Date: 20220823
  Receipt Date: 20220823
  Transmission Date: 20221027
  Serious: No
  Sender: FDA-Public Use
  Company Number: US-PFIZER INC-202201074808

PATIENT
  Age: 22 Year
  Sex: Male
  Weight: 83.91 kg

DRUGS (2)
  1. VIAGRA [Suspect]
     Active Substance: SILDENAFIL CITRATE
     Indication: Erectile dysfunction
     Dosage: 150 MG, AS NEEDED (TAKES IT TWICE WITHIN 4 HOURS AS NEEDED)
     Dates: start: 2022
  2. ADVIL [Concomitant]
     Active Substance: IBUPROFEN
     Indication: Inflammation
     Dosage: 800 MG [TOOK THIS A COUPLE OF DAYS]

REACTIONS (3)
  - Penile pain [Not Recovered/Not Resolved]
  - Product prescribing error [Unknown]
  - Off label use [Unknown]
